FAERS Safety Report 25318020 (Version 1)
Quarter: 2025Q2

REPORT INFORMATION
  Report Type: Spontaneous
  Country: US (occurrence: US)
  Receive Date: 20250515
  Receipt Date: 20250515
  Transmission Date: 20250717
  Serious: Yes (Hospitalization)
  Sender: MYLAN
  Company Number: US-MYLANLABS-2025M1040537

PATIENT
  Age: 22 Year
  Sex: Female

DRUGS (12)
  1. TRANEXAMIC ACID [Suspect]
     Active Substance: TRANEXAMIC ACID
     Indication: Uterine haemorrhage
  2. TRANEXAMIC ACID [Suspect]
     Active Substance: TRANEXAMIC ACID
     Route: 065
  3. TRANEXAMIC ACID [Suspect]
     Active Substance: TRANEXAMIC ACID
     Route: 065
  4. TRANEXAMIC ACID [Suspect]
     Active Substance: TRANEXAMIC ACID
  5. MEDROXYPROGESTERONE [Suspect]
     Active Substance: MEDROXYPROGESTERONE
     Indication: Uterine haemorrhage
  6. MEDROXYPROGESTERONE [Suspect]
     Active Substance: MEDROXYPROGESTERONE
     Route: 065
  7. MEDROXYPROGESTERONE [Suspect]
     Active Substance: MEDROXYPROGESTERONE
     Route: 065
  8. MEDROXYPROGESTERONE [Suspect]
     Active Substance: MEDROXYPROGESTERONE
  9. MISOPROSTOL [Suspect]
     Active Substance: MISOPROSTOL
     Indication: Uterine haemorrhage
  10. MISOPROSTOL [Suspect]
     Active Substance: MISOPROSTOL
     Route: 065
  11. MISOPROSTOL [Suspect]
     Active Substance: MISOPROSTOL
     Route: 065
  12. MISOPROSTOL [Suspect]
     Active Substance: MISOPROSTOL

REACTIONS (1)
  - Drug ineffective [Unknown]
